FAERS Safety Report 4268775-2 (Version None)
Quarter: 2004Q1

REPORT INFORMATION
  Report Type: 
  Country: None (occurrence: None)
  Receive Date: 20040112
  Receipt Date: 20040108
  Transmission Date: 20041129
  Serious: Yes (Life-Threatening, Hospitalization)
  Sender: FDA-Public Use
  Company Number: PHBS2004ES00584

PATIENT
  Age: 73 Year
  Sex: Male

DRUGS (6)
  1. DIGARIL PROLIB [Suspect]
     Indication: HYPERLIPIDAEMIA
     Dates: start: 20010101
  2. SECALIP [Suspect]
     Indication: HYPERLIPIDAEMIA
     Dates: start: 20010101
  3. DISGREN [Concomitant]
     Dosage: 300 MG, UNK
     Dates: start: 20020101
  4. DIAMICRON [Concomitant]
     Indication: DIABETES MELLITUS
     Dosage: 160 MG, UNK
     Route: 048
     Dates: start: 20020101
  5. NORVASC [Concomitant]
     Indication: ESSENTIAL HYPERTENSION
     Dosage: 5 MG, UNK
     Route: 048
     Dates: start: 20020101
  6. SEGURIL [Concomitant]
     Indication: ESSENTIAL HYPERTENSION
     Dosage: 40 G, UNK
     Route: 048
     Dates: start: 20020101

REACTIONS (2)
  - DRUG INTERACTION [None]
  - RHABDOMYOLYSIS [None]
